FAERS Safety Report 24158901 (Version 1)
Quarter: 2024Q3

REPORT INFORMATION
  Report Type: Report from Study
  Country: US (occurrence: US)
  Receive Date: 20240731
  Receipt Date: 20240731
  Transmission Date: 20241017
  Serious: Yes (Other)
  Sender: GILEAD
  Company Number: US-GILEAD-2024-0682447

PATIENT
  Sex: Female
  Weight: 87.528 kg

DRUGS (21)
  1. AMBRISENTAN [Suspect]
     Active Substance: AMBRISENTAN
     Indication: Product used for unknown indication
     Dosage: UNK
     Route: 065
  2. REMODULIN [Suspect]
     Active Substance: TREPROSTINIL
     Indication: Pulmonary arterial hypertension
     Dosage: 41 NG/KG/MIN
     Route: 058
  3. DILTIAZEM [Concomitant]
     Active Substance: DILTIAZEM
  4. ZOLOFT [Concomitant]
     Active Substance: SERTRALINE HYDROCHLORIDE
  5. OXYCODONE [Concomitant]
     Active Substance: OXYCODONE
  6. TREPROSTINIL [Concomitant]
     Active Substance: TREPROSTINIL
  7. KETAMINE [Concomitant]
     Active Substance: KETAMINE
  8. LECITHIN [Concomitant]
     Active Substance: LECITHIN
  9. NEXIUM I.V. [Concomitant]
     Active Substance: ESOMEPRAZOLE SODIUM
  10. SILDENAFIL CITRATE [Concomitant]
     Active Substance: SILDENAFIL CITRATE
  11. FAMOTIDINE [Concomitant]
     Active Substance: FAMOTIDINE
  12. PREDNISONE [Concomitant]
     Active Substance: PREDNISONE
  13. ALDACTONE [Concomitant]
     Active Substance: SPIRONOLACTONE
  14. METOPROLOL SUCCINATE [Concomitant]
     Active Substance: METOPROLOL SUCCINATE
  15. CLONIDINE [Concomitant]
     Active Substance: CLONIDINE
  16. KETOPROFEN [Concomitant]
     Active Substance: KETOPROFEN
  17. LIDOCAINE [Concomitant]
     Active Substance: LIDOCAINE
  18. GABAPENTIN [Concomitant]
     Active Substance: GABAPENTIN
  19. CARAFATE [Concomitant]
     Active Substance: SUCRALFATE
  20. AMITRIPTYLINE HYDROCHLORIDE [Concomitant]
     Active Substance: AMITRIPTYLINE HYDROCHLORIDE
  21. TORSEMIDE [Concomitant]
     Active Substance: TORSEMIDE

REACTIONS (1)
  - Cardiac disorder [Unknown]
